FAERS Safety Report 25636448 (Version 2)
Quarter: 2025Q4

REPORT INFORMATION
  Report Type: Spontaneous
  Country: TH (occurrence: TH)
  Receive Date: 20250803
  Receipt Date: 20251027
  Transmission Date: 20260118
  Serious: Yes (Other)
  Sender: BRISTOL-MYERS SQUIBB COMPANY
  Company Number: TH-BRISTOL-MYERS SQUIBB COMPANY-2025-105207

PATIENT
  Age: 66 Year
  Sex: Female
  Weight: 64 kg

DRUGS (12)
  1. NIVOLUMAB [Suspect]
     Active Substance: NIVOLUMAB
     Indication: Lung squamous cell carcinoma stage III
     Route: 042
  2. NIVOLUMAB [Suspect]
     Active Substance: NIVOLUMAB
     Route: 042
  3. NIVOLUMAB [Suspect]
     Active Substance: NIVOLUMAB
     Route: 042
  4. NIVOLUMAB [Suspect]
     Active Substance: NIVOLUMAB
     Route: 042
  5. CARBOPLATIN [Suspect]
     Active Substance: CARBOPLATIN
     Indication: Lung squamous cell carcinoma stage III
  6. CARBOPLATIN [Suspect]
     Active Substance: CARBOPLATIN
  7. CARBOPLATIN [Suspect]
     Active Substance: CARBOPLATIN
  8. CARBOPLATIN [Suspect]
     Active Substance: CARBOPLATIN
  9. PACLITAXEL [Suspect]
     Active Substance: PACLITAXEL
     Indication: Lung squamous cell carcinoma stage III
  10. PACLITAXEL [Suspect]
     Active Substance: PACLITAXEL
  11. PACLITAXEL [Suspect]
     Active Substance: PACLITAXEL
  12. PACLITAXEL [Suspect]
     Active Substance: PACLITAXEL

REACTIONS (6)
  - Infusion related reaction [Unknown]
  - Nausea [Unknown]
  - Alopecia [Unknown]
  - Rash [Unknown]
  - Off label use [Unknown]
  - Muscle tightness [Unknown]

NARRATIVE: CASE EVENT DATE: 20250301
